FAERS Safety Report 19454709 (Version 3)
Quarter: 2022Q1

REPORT INFORMATION
  Report Type: Report from Study
  Country: US (occurrence: US)
  Receive Date: 20210623
  Receipt Date: 20220303
  Transmission Date: 20220423
  Serious: Yes (Hospitalization, Other)
  Sender: FDA-Public Use
  Company Number: US-TAKEDA-2021TUS038740

PATIENT
  Sex: Male
  Weight: 81.633 kg

DRUGS (22)
  1. HUMAN IMMUNOGLOBULIN G [Suspect]
     Active Substance: HUMAN IMMUNOGLOBULIN G
     Indication: Selective IgG subclass deficiency
     Dosage: 8 GRAM, 1/WEEK
     Route: 058
     Dates: start: 20170123
  2. ACETAMINOPHEN [Concomitant]
     Active Substance: ACETAMINOPHEN
  3. DIPHENHYDRAMINE [Concomitant]
     Active Substance: DIPHENHYDRAMINE
  4. LIDOCAINE [Concomitant]
     Active Substance: LIDOCAINE
  5. EPINEPHRINE [Concomitant]
     Active Substance: EPINEPHRINE
  6. DALIRESP [Concomitant]
     Active Substance: ROFLUMILAST
  7. SIMVASTATIN [Concomitant]
     Active Substance: SIMVASTATIN
  8. AUGMENTIN [Concomitant]
     Active Substance: AMOXICILLIN\CLAVULANATE POTASSIUM
  9. VITAMINS [Concomitant]
     Active Substance: VITAMINS
  10. PREDNISONE [Concomitant]
     Active Substance: PREDNISONE
  11. MINERALS\VITAMINS [Concomitant]
     Active Substance: MINERALS\VITAMINS
  12. LEVAQUIN [Concomitant]
     Active Substance: LEVOFLOXACIN
  13. NORVASC [Concomitant]
     Active Substance: AMLODIPINE BESYLATE
  14. SINGULAIR [Concomitant]
     Active Substance: MONTELUKAST SODIUM
  15. SPIRIVA [Concomitant]
     Active Substance: TIOTROPIUM BROMIDE MONOHYDRATE
  16. COENZYME Q10 [Concomitant]
     Active Substance: DIETARY SUPPLEMENT\UBIDECARENONE
  17. VALSARTAN [Concomitant]
     Active Substance: VALSARTAN
  18. MUCINEX [Concomitant]
     Active Substance: GUAIFENESIN
  19. OXYGEN [Concomitant]
     Active Substance: OXYGEN
  20. SYMBICORT [Concomitant]
     Active Substance: BUDESONIDE\FORMOTEROL FUMARATE DIHYDRATE
  21. BICALUTAMIDE [Concomitant]
     Active Substance: BICALUTAMIDE
  22. TAMSULOSIN HYDROCHLORIDE [Concomitant]
     Active Substance: TAMSULOSIN HYDROCHLORIDE

REACTIONS (2)
  - Prostate cancer [Unknown]
  - Herpes zoster [Unknown]
